FAERS Safety Report 26110417 (Version 1)
Quarter: 2025Q4

REPORT INFORMATION
  Report Type: Spontaneous
  Country: US (occurrence: US)
  Receive Date: 20251202
  Receipt Date: 20251202
  Transmission Date: 20260118
  Serious: Yes (Other)
  Sender: Unknown Manufacturer
  Company Number: US-LENZ THERAPEUTICS, INC.-2025LTS000254

PATIENT
  Age: 63 Year
  Sex: Male

DRUGS (3)
  1. VIZZ [Suspect]
     Active Substance: ACECLIDINE HYDROCHLORIDE
     Indication: Presbyopia
     Dosage: 0.4 MILLILITER, QD
     Route: 047
     Dates: start: 20251111
  2. VIZZ [Suspect]
     Active Substance: ACECLIDINE HYDROCHLORIDE
     Dosage: 0.4 MILLILITER, QD
     Route: 047
     Dates: start: 20251112
  3. VIZZ [Suspect]
     Active Substance: ACECLIDINE HYDROCHLORIDE
     Dosage: 0.4 MILLILITER, QD
     Route: 047
     Dates: start: 20251113

REACTIONS (5)
  - Vitreous haemorrhage [Recovering/Resolving]
  - Vitreoretinal traction syndrome [Recovering/Resolving]
  - Retinal tear [Recovering/Resolving]
  - Product dose omission in error [Unknown]
  - Photopsia [Recovering/Resolving]

NARRATIVE: CASE EVENT DATE: 20251112
